FAERS Safety Report 9018561 (Version 1)
Quarter: 2013Q1

REPORT INFORMATION
  Report Type: Spontaneous
  Country: US (occurrence: US)
  Receive Date: 20130118
  Receipt Date: 20130118
  Transmission Date: 20140127
  Serious: Yes (Other)
  Sender: FDA-Public Use
  Company Number: US-PFIZER INC-2013020202

PATIENT
  Sex: Female

DRUGS (1)
  1. ADVIL COLD AND SINUS [Suspect]
     Dosage: 2 TABLETS, EVERY 6 HOURS

REACTIONS (3)
  - Palpitations [Unknown]
  - Dyspnoea [Unknown]
  - Feeling abnormal [Unknown]
